FAERS Safety Report 18341303 (Version 1)
Quarter: 2020Q4

REPORT INFORMATION
  Report Type: Spontaneous
  Country: NL (occurrence: NL)
  Receive Date: 20201003
  Receipt Date: 20201003
  Transmission Date: 20210113
  Serious: Yes (Other)
  Sender: FDA-Public Use
  Company Number: NL-TEVA-2020-NL-1834381

PATIENT
  Sex: Female
  Weight: 84 kg

DRUGS (5)
  1. PANTOPRAZOL TABLET MSR 20MG / MAAGZUURTABLET PANTOPRAZOL HTP TABLET MS [Concomitant]
     Dosage: 20 MG (MILLIGRAM),THERAPY START DATE: ASKU, THERAPY END DATE:ASKU
  2. PARACETAMOL TABLET 1000MG / BRAND NAME NOT SPECIFIED [Concomitant]
     Dosage: 1000 MG (MILLIGRAM),THERAPY START DATE: ASKU, THERAPY END DATE:ASKU
  3. ALENDRONINEZUUR TABLET 70MG / BRAND NAME NOT SPECIFIED [Suspect]
     Active Substance: ALENDRONIC ACID
     Indication: OSTEOPOROSIS
     Dosage: 1 X PER WEEK
     Dates: start: 202001, end: 20200612
  4. TRAMADOL CAPSULE MGA  50MG / BRAND NAME NOT SPECIFIED [Concomitant]
     Active Substance: TRAMADOL
     Dosage: MODIFIED-RELEASE CAPSULE, 50 MG (MILLIGRAMS),THERAPY START DATE: ASKU, THERAPY END DATE:ASKU
  5. IBUPROFEN DRAGEE 400MG / BRAND NAME NOT SPECIFIED [Concomitant]
     Dosage: TABLET, 400 MG (MILLIGRAM),THERAPY START DATE: ASKU, THERAPY END DATE:ASKU

REACTIONS (7)
  - Visual impairment [Recovering/Resolving]
  - Halo vision [Recovering/Resolving]
  - Vision blurred [Recovering/Resolving]
  - Photopsia [Recovering/Resolving]
  - Eye haemorrhage [Recovered/Resolved]
  - Ocular icterus [Recovered/Resolved]
  - Photophobia [Recovering/Resolving]
